FAERS Safety Report 10274634 (Version 3)
Quarter: 2014Q3

REPORT INFORMATION
  Report Type: Spontaneous
  Country: KR (occurrence: KR)
  Receive Date: 20140702
  Receipt Date: 20140724
  Transmission Date: 20150326
  Serious: Yes (Hospitalization, Disabling, Other)
  Sender: FDA-Public Use
  Company Number: KR-009507513-1306KOR014065

PATIENT
  Age: 38 Year
  Sex: Female
  Weight: 54 kg

DRUGS (1)
  1. IMPLANON [Suspect]
     Active Substance: ETONOGESTREL
     Dosage: UNK
     Route: 059
     Dates: start: 20120530

REACTIONS (18)
  - Joint range of motion decreased [Unknown]
  - Device difficult to use [Unknown]
  - Device difficult to use [Unknown]
  - Abdominal distension [Recovering/Resolving]
  - Peripheral swelling [Unknown]
  - General anaesthesia [Unknown]
  - Musculoskeletal pain [Not Recovered/Not Resolved]
  - Peripheral nerve palsy [Unknown]
  - Weight increased [Unknown]
  - Medical device complication [Unknown]
  - Asthenia [Unknown]
  - Foreign body [Unknown]
  - Paraesthesia [Not Recovered/Not Resolved]
  - Surgery [Unknown]
  - Device dislocation [Unknown]
  - Haemorrhage [Unknown]
  - Peripheral nerve decompression [Unknown]
  - Postoperative adhesion [Unknown]

NARRATIVE: CASE EVENT DATE: 2012
